FAERS Safety Report 13637686 (Version 11)
Quarter: 2017Q4

REPORT INFORMATION
  Report Type: Report from Study
  Country: None (occurrence: TR)
  Receive Date: 20170609
  Receipt Date: 20171125
  Transmission Date: 20180320
  Serious: Yes (Hospitalization, Other)
  Sender: FDA-Public Use
  Company Number: TR-ABBVIE-17K-161-2001597-00

PATIENT
  Age: 84 Year
  Sex: Male
  Weight: 68 kg

DRUGS (8)
  1. DUODOPA [Suspect]
     Active Substance: CARBIDOPA\LEVODOPA
     Indication: PARKINSON^S DISEASE
     Dosage: MORNING DOSE: 4.00 ML??CONTINUOUS DOSE: 4.50 ML??EXTRA DOSE: 0.50 ML
     Route: 050
     Dates: start: 20160531
  2. DUODOPA [Suspect]
     Active Substance: CARBIDOPA\LEVODOPA
     Dosage: MORNING DOSE: 4.00 ML?CONTINUOUS DOSE: 4.2 ML?EXTRA DOSE: 0.50 ML
     Route: 050
     Dates: start: 20170621, end: 2017
  3. DUODOPA [Suspect]
     Active Substance: CARBIDOPA\LEVODOPA
     Route: 050
     Dates: start: 20171117
  4. DUODOPA [Suspect]
     Active Substance: CARBIDOPA\LEVODOPA
     Dosage: MORNING DOSE: 4,00 ML?CONTINUOUS DOSE: 4.00 ML?EXTRA DOSE: 0,50 ML
     Route: 050
     Dates: start: 20171004, end: 20171010
  5. DUODOPA [Suspect]
     Active Substance: CARBIDOPA\LEVODOPA
     Dosage: CONTINUOUS DOSE: 4.0 ML
     Route: 050
     Dates: start: 201710, end: 2017
  6. DUODOPA [Suspect]
     Active Substance: CARBIDOPA\LEVODOPA
     Dosage: MORNING DOSE: 4.00 ML?CONTINUOUS DOSE: 3.70 ML?EXTRA DOSE: 0.50 ML
     Route: 050
     Dates: start: 2017
  7. EXELON PATCH [Concomitant]
     Active Substance: RIVASTIGMINE
     Indication: DEMENTIA
     Route: 062
  8. DUODOPA [Suspect]
     Active Substance: CARBIDOPA\LEVODOPA
     Dosage: MORNING DOSE: 4,00 ML?CONTINUOUS DOSE: 4.20 ML?EXTRA DOSE: 0,50 ML
     Route: 050
     Dates: start: 20171010, end: 20171019

REACTIONS (12)
  - Drug dose omission [Recovered/Resolved]
  - Device kink [Unknown]
  - Suicide attempt [Recovered/Resolved]
  - Parkinson^s disease psychosis [Not Recovered/Not Resolved]
  - Intentional dose omission [Recovered/Resolved]
  - Intentional dose omission [Not Recovered/Not Resolved]
  - Device breakage [Unknown]
  - Device occlusion [Recovered/Resolved]
  - Device occlusion [Not Recovered/Not Resolved]
  - Agitation [Unknown]
  - Overdose [Recovered/Resolved]
  - Persecutory delusion [Unknown]

NARRATIVE: CASE EVENT DATE: 2017
